FAERS Safety Report 13711561 (Version 1)
Quarter: 2017Q3

REPORT INFORMATION
  Report Type: Spontaneous
  Country: FR (occurrence: FR)
  Receive Date: 20170703
  Receipt Date: 20170703
  Transmission Date: 20171127
  Serious: Yes (Hospitalization, Other)
  Sender: FDA-Public Use
  Company Number: FR-GILEAD-2017-0281042

PATIENT
  Age: 27 Year
  Sex: Male

DRUGS (3)
  1. LAMIVUDINE. [Suspect]
     Active Substance: LAMIVUDINE
     Indication: EXPOSURE TO BODY FLUID
     Dosage: 300 MG, QD
     Route: 048
     Dates: start: 20170423, end: 20170511
  2. VIREAD [Suspect]
     Active Substance: TENOFOVIR DISOPROXIL FUMARATE
     Indication: EXPOSURE TO BODY FLUID
     Dosage: 245 MG, QD
     Route: 048
     Dates: start: 20170423, end: 20170511
  3. EFAVIRENZ MYLAN [Suspect]
     Active Substance: EFAVIRENZ
     Indication: EXPOSURE TO BODY FLUID
     Dosage: 600 MG, QD
     Route: 048
     Dates: start: 20170423, end: 20170511

REACTIONS (5)
  - Bicytopenia [Recovering/Resolving]
  - Off label use [Recovered/Resolved]
  - Vertigo [Recovered/Resolved]
  - Pyrexia [Recovered/Resolved]
  - Hepatitis [Recovering/Resolving]

NARRATIVE: CASE EVENT DATE: 20170423
